FAERS Safety Report 20085413 (Version 3)
Quarter: 2022Q1

REPORT INFORMATION
  Report Type: Report from Study
  Country: US (occurrence: US)
  Receive Date: 20211118
  Receipt Date: 20220122
  Transmission Date: 20220424
  Serious: Yes (Hospitalization, Other)
  Sender: FDA-Public Use
  Company Number: US-NOVARTISPH-NVSC2021US259448

PATIENT
  Age: 76 Year
  Sex: Female

DRUGS (6)
  1. ENTRESTO [Suspect]
     Active Substance: SACUBITRIL\VALSARTAN
     Indication: Cardiac failure
     Dosage: 50 MG, BID, (24/26 MG)
     Route: 048
     Dates: start: 20211109
  2. ENTRESTO [Suspect]
     Active Substance: SACUBITRIL\VALSARTAN
     Dosage: 49.51 MG, BID
     Route: 048
  3. SPIRONOLACTONE [Suspect]
     Active Substance: SPIRONOLACTONE
     Indication: Product used for unknown indication
     Dosage: 25 MG, QD
     Route: 065
  4. FUROSEMIDE [Concomitant]
     Active Substance: FUROSEMIDE
     Indication: Product used for unknown indication
     Route: 065
  5. FUROSEMIDE [Concomitant]
     Active Substance: FUROSEMIDE
     Dosage: 20 MG, BID (20 MG TWO TABLETS A DAY)
     Route: 065
     Dates: start: 20211122
  6. FARXIGA [Concomitant]
     Active Substance: DAPAGLIFLOZIN PROPANEDIOL
     Indication: Product used for unknown indication
     Dosage: 1 DOSAGE FORM, QD
     Route: 065
     Dates: start: 20211122

REACTIONS (19)
  - Cardiac failure [Recovered/Resolved]
  - Mitral valve incompetence [Unknown]
  - Pulmonary oedema [Unknown]
  - Cardiac dysfunction [Unknown]
  - Rheumatoid arthritis [Unknown]
  - Skin discolouration [Recovered/Resolved]
  - Oxygen saturation decreased [Recovered/Resolved]
  - Weight increased [Recovered/Resolved]
  - Back pain [Recovering/Resolving]
  - Depression [Recovered/Resolved]
  - Insomnia [Unknown]
  - Weight fluctuation [Not Recovered/Not Resolved]
  - Asthenia [Recovering/Resolving]
  - Fatigue [Recovering/Resolving]
  - Pain in extremity [Unknown]
  - Blood potassium increased [Recovered/Resolved]
  - Weight decreased [Unknown]
  - Appetite disorder [Unknown]
  - Thyroid mass [Unknown]

NARRATIVE: CASE EVENT DATE: 20211101
